FAERS Safety Report 6222838-0 (Version None)
Quarter: 2009Q2

REPORT INFORMATION
  Report Type: 
  Country: None (occurrence: None)
  Receive Date: 20090611
  Receipt Date: 20090604
  Transmission Date: 20091009
  Serious: Yes (Hospitalization)
  Sender: FDA-Public Use
  Company Number: B0569585A

PATIENT
  Sex: Female

DRUGS (9)
  1. LAMICTAL [Suspect]
     Indication: DEPRESSION
     Route: 048
     Dates: start: 20090203, end: 20090303
  2. VALPROATE SODIUM [Concomitant]
     Route: 048
  3. LIMAS [Concomitant]
     Indication: BIPOLAR DISORDER
     Dosage: 400MG PER DAY
     Route: 048
     Dates: start: 20051001
  4. AMOXAN [Concomitant]
     Indication: DEPRESSION
     Dosage: 150MG PER DAY
     Route: 048
     Dates: start: 19910101
  5. ZOLOFT [Concomitant]
     Indication: DEPRESSION
     Route: 048
  6. DEPAKENE [Concomitant]
     Indication: BIPOLAR DISORDER
     Dosage: 200MG PER DAY
     Route: 048
     Dates: start: 20070501
  7. LENDORMIN [Concomitant]
     Indication: INSOMNIA
     Dosage: .5MG PER DAY
     Route: 048
  8. DEPAS [Concomitant]
     Indication: INSOMNIA
     Dosage: 2MG PER DAY
     Route: 048
  9. TECIPUL [Concomitant]
     Dosage: 2TAB THREE TIMES PER DAY
     Route: 065

REACTIONS (8)
  - COUGH [None]
  - DRUG ERUPTION [None]
  - ERYTHEMA [None]
  - FLUSHING [None]
  - HOT FLUSH [None]
  - PARAESTHESIA [None]
  - RASH [None]
  - SKIN DISORDER [None]
